FAERS Safety Report 17180135 (Version 1)
Quarter: 2019Q4

REPORT INFORMATION
  Report Type: Report from Study
  Country: CZ (occurrence: CZ)
  Receive Date: 20191219
  Receipt Date: 20191219
  Transmission Date: 20200122
  Serious: Yes (Death, Hospitalization)
  Sender: FDA-Public Use
  Company Number: CZ-ELI_LILLY_AND_COMPANY-CZ201905005481

PATIENT
  Age: 52 Year
  Sex: Male
  Weight: 96 kg

DRUGS (4)
  1. NAPABUCASIN [Concomitant]
     Active Substance: NAPABUCASIN
     Dosage: 80 MG, BID
     Route: 048
     Dates: end: 20190428
  2. GEMCITABINE HYDROCHLORIDE. [Suspect]
     Active Substance: GEMCITABINE HYDROCHLORIDE
     Indication: PANCREATIC CARCINOMA
     Dosage: 2150 MG, WEEKLY (1/W)
     Route: 042
     Dates: start: 20181218, end: 20190423
  3. PACLITAXEL ALBUMIN [Concomitant]
     Active Substance: PACLITAXEL
     Indication: PANCREATIC CARCINOMA
     Dosage: 270 MG, WEEKLY (1/W)
     Route: 042
     Dates: start: 20181218, end: 20190423
  4. NAPABUCASIN [Concomitant]
     Active Substance: NAPABUCASIN
     Indication: PANCREATIC CARCINOMA
     Dosage: 240 MG, BID
     Route: 048
     Dates: start: 20181214

REACTIONS (4)
  - Pancytopenia [Recovering/Resolving]
  - Renal failure [Recovering/Resolving]
  - Sepsis [Fatal]
  - Infection [Recovering/Resolving]

NARRATIVE: CASE EVENT DATE: 20190429
